FAERS Safety Report 25737318 (Version 1)
Quarter: 2025Q3

REPORT INFORMATION
  Report Type: Spontaneous
  Country: US (occurrence: US)
  Receive Date: 20250828
  Receipt Date: 20250828
  Transmission Date: 20251021
  Serious: No
  Sender: BRISTOL-MYERS SQUIBB COMPANY
  Company Number: US-BRISTOL-MYERS SQUIBB COMPANY-2025-119456

PATIENT
  Age: 52 Year
  Sex: Female

DRUGS (3)
  1. ORENCIA [Interacting]
     Active Substance: ABATACEPT
     Indication: Rheumatoid arthritis
     Route: 058
     Dates: start: 202303
  2. IBUPROFEN [Interacting]
     Active Substance: IBUPROFEN
     Indication: Pain
  3. METHOTREXATE [Interacting]
     Active Substance: METHOTREXATE
     Indication: Pain

REACTIONS (1)
  - Drug interaction [Unknown]
